FAERS Safety Report 7442028-3 (Version None)
Quarter: 2011Q2

REPORT INFORMATION
  Report Type: 
  Country: None (occurrence: None)
  Receive Date: 20110419
  Receipt Date: 20110411
  Transmission Date: 20111010
  Serious: Yes (Hospitalization)
  Sender: FDA-Public Use
  Company Number: WAES 1104FRA00066

PATIENT
  Age: 33 Year
  Sex: Male

DRUGS (8)
  1. TENOFOVIR DISOPROXIL FUMARATE [Suspect]
     Indication: HIV INFECTION
     Dosage: 300 MG/DAILY/PO
     Route: 048
     Dates: start: 20110328
  2. LAMIVUDINE [Suspect]
     Indication: HIV INFECTION
     Dosage: 300 MG/DAILY/PO
     Route: 048
     Dates: start: 20110328
  3. ETNAMOUTOT HYDROCHLORIDE [Concomitant]
  4. ISONIAZID [Concomitant]
  5. PYRIDOXINE [Concomitant]
  6. RIFAMPIN [Concomitant]
  7. ISENTRESS [Suspect]
     Indication: HIV INFECTION
     Dosage: 1600 MG/DAILY/PO
     Route: 048
     Dates: start: 20110328
  8. PYRAZINAMIDE [Concomitant]

REACTIONS (3)
  - PYREXIA [None]
  - DYSPNOEA [None]
  - COUGH [None]
